FAERS Safety Report 8503883 (Version 3)
Quarter: 2015Q1

REPORT INFORMATION
  Report Type: Spontaneous
  Country: IT (occurrence: IT)
  Receive Date: 20120411
  Receipt Date: 20150318
  Transmission Date: 20150721
  Serious: Yes (Hospitalization, Other)
  Sender: FDA-Public Use
  Company Number: IT-PFIZER INC-2012088755

PATIENT
  Age: 88 Year
  Sex: Female

DRUGS (7)
  1. TAREG [Concomitant]
     Active Substance: VALSARTAN
     Dosage: UNK
  2. ALLOPURINOL SANDOZ [Concomitant]
     Active Substance: ALLOPURINOL
     Dosage: UNK
  3. DIURESIX [Concomitant]
     Active Substance: TORSEMIDE
     Dosage: UNK
  4. ASCRIPTIN [Concomitant]
     Active Substance: ASPIRIN
     Dosage: UNK
  5. CEFODOX [Suspect]
     Active Substance: CEFPODOXIME PROXETIL
     Indication: INFLUENZA
     Dosage: 200 MG, DAILY
     Route: 048
     Dates: start: 20120317, end: 20120319
  6. MEDROL [Suspect]
     Active Substance: METHYLPREDNISOLONE
     Indication: MUSCULOSKELETAL PAIN
     Dosage: 8 MG, DAILY
     Dates: start: 20120317, end: 20120319
  7. TOLIMAN [Suspect]
     Active Substance: CINNARIZINE
     Indication: PARAESTHESIA
     Dosage: 30 DROPS, DAILY
     Route: 048
     Dates: start: 20120317, end: 20120319

REACTIONS (2)
  - Transaminases increased [Not Recovered/Not Resolved]
  - Cholestasis [Not Recovered/Not Resolved]

NARRATIVE: CASE EVENT DATE: 20120319
